FAERS Safety Report 9499155 (Version 3)
Quarter: 2014Q1

REPORT INFORMATION
  Report Type: Spontaneous
  Country: JP (occurrence: JP)
  Receive Date: 20130905
  Receipt Date: 20140324
  Transmission Date: 20141002
  Serious: Yes (Disabling, Other)
  Sender: FDA-Public Use
  Company Number: JP-ROCHE-1270192

PATIENT
  Age: 66 Year
  Sex: Female

DRUGS (4)
  1. LUCENTIS [Suspect]
     Indication: AGE-RELATED MACULAR DEGENERATION
     Route: 050
     Dates: start: 20091020, end: 20091020
  2. LUCENTIS [Suspect]
     Route: 050
     Dates: start: 20091215, end: 20091215
  3. LUCENTIS [Suspect]
     Route: 050
     Dates: start: 20090127, end: 20090127
  4. LUCENTIS [Suspect]
     Route: 050
     Dates: start: 20100430, end: 20100430

REACTIONS (1)
  - Retinal haemorrhage [Not Recovered/Not Resolved]
